FAERS Safety Report 16667388 (Version 1)
Quarter: 2019Q3

REPORT INFORMATION
  Report Type: Spontaneous
  Country: US (occurrence: US)
  Receive Date: 20190805
  Receipt Date: 20190805
  Transmission Date: 20191004
  Serious: Yes (Other)
  Sender: FDA-Public Use
  Company Number: US-ROCHE-2370352

PATIENT
  Sex: Female

DRUGS (1)
  1. XOLAIR [Suspect]
     Active Substance: OMALIZUMAB
     Indication: ASTHMA
     Dosage: FORM STRENGTH: 75 MG/ 0.5 ML, DOSE: 75 MG/0.5 ML
     Route: 058
     Dates: start: 20190604, end: 20190627

REACTIONS (1)
  - Anaphylactic reaction [Unknown]
